FAERS Safety Report 6556584-0 (Version None)
Quarter: 2010Q1

REPORT INFORMATION
  Report Type: 
  Country: None (occurrence: None)
  Receive Date: 20100125
  Receipt Date: 20100114
  Transmission Date: 20100710
  Serious: Yes (Death, Other)
  Sender: FDA-Public Use
  Company Number: 2010SP003149

PATIENT
  Age: 49 Year
  Sex: Female

DRUGS (6)
  1. REMERON [Suspect]
     Indication: DRUG USE FOR UNKNOWN INDICATION
     Dosage: 15 MG;QD;PO
     Route: 048
     Dates: start: 20091212, end: 20091216
  2. LORAZEPAM [Suspect]
     Indication: DRUG USE FOR UNKNOWN INDICATION
     Dosage: 0.5 MG;PRN;PO
     Route: 048
     Dates: start: 20091212, end: 20091213
  3. SEROQUEL [Suspect]
     Indication: DRUG USE FOR UNKNOWN INDICATION
     Dosage: 50 MG; ONCE; PO; 25 MG;ONCE;PO; 25 MG;ONCE;PO; 200 MG;ONCE;PO
     Route: 048
     Dates: start: 20091212, end: 20091212
  4. SEROQUEL [Suspect]
     Indication: DRUG USE FOR UNKNOWN INDICATION
     Dosage: 50 MG; ONCE; PO; 25 MG;ONCE;PO; 25 MG;ONCE;PO; 200 MG;ONCE;PO
     Route: 048
     Dates: start: 20091214, end: 20091214
  5. SEROQUEL [Suspect]
     Indication: DRUG USE FOR UNKNOWN INDICATION
     Dosage: 50 MG; ONCE; PO; 25 MG;ONCE;PO; 25 MG;ONCE;PO; 200 MG;ONCE;PO
     Route: 048
     Dates: start: 20091215, end: 20091215
  6. SEROQUEL [Suspect]
     Indication: DRUG USE FOR UNKNOWN INDICATION
     Dosage: 50 MG; ONCE; PO; 25 MG;ONCE;PO; 25 MG;ONCE;PO; 200 MG;ONCE;PO
     Route: 048
     Dates: start: 20091216, end: 20091216

REACTIONS (8)
  - COMPLETED SUICIDE [None]
  - DELUSION [None]
  - DEPRESSION [None]
  - DEPRESSIVE SYMPTOM [None]
  - FEELING GUILTY [None]
  - HALLUCINATION, AUDITORY [None]
  - INTENTIONAL SELF-INJURY [None]
  - LISTLESS [None]
